FAERS Safety Report 12466566 (Version 1)
Quarter: 2016Q2

REPORT INFORMATION
  Report Type: Spontaneous
  Country: US (occurrence: US)
  Receive Date: 20160615
  Receipt Date: 20160615
  Transmission Date: 20160815
  Serious: No
  Sender: FDA-Public Use
  Company Number: US-ASTRAZENECA-2016SE60279

PATIENT
  Sex: Male
  Weight: 72.6 kg

DRUGS (2)
  1. SEROQUEL XR [Suspect]
     Active Substance: QUETIAPINE FUMARATE
     Indication: SLEEP DISORDER
     Dosage: 300.0MG ONCE/SINGLE ADMINISTRATION
     Route: 048
     Dates: start: 201510
  2. OXYCODONE [Concomitant]
     Active Substance: OXYCODONE
     Indication: BACK DISORDER

REACTIONS (2)
  - Aggression [Unknown]
  - Intentional product misuse [Unknown]
